FAERS Safety Report 12581763 (Version 1)
Quarter: 2016Q3

REPORT INFORMATION
  Report Type: Spontaneous
  Country: US (occurrence: US)
  Receive Date: 20160722
  Receipt Date: 20160722
  Transmission Date: 20161109
  Serious: No
  Sender: FDA-Public Use
  Company Number: US-BIOGEN-2016BI00268504

PATIENT
  Age: 32 Year
  Sex: Female

DRUGS (1)
  1. AVONEX [Suspect]
     Active Substance: INTERFERON BETA-1A
     Indication: MULTIPLE SCLEROSIS
     Route: 030
     Dates: start: 20160616

REACTIONS (7)
  - Nausea [Recovered/Resolved]
  - Diarrhoea [Recovered/Resolved]
  - Panic attack [Recovered/Resolved]
  - Myalgia [Recovered/Resolved]
  - Muscle disorder [Recovered/Resolved]
  - Pyrexia [Recovered/Resolved]
  - Chills [Recovered/Resolved]

NARRATIVE: CASE EVENT DATE: 201607
